FAERS Safety Report 11480987 (Version 2)
Quarter: 2015Q3

REPORT INFORMATION
  Report Type: Spontaneous
  Country: TR (occurrence: TR)
  Receive Date: 20150909
  Receipt Date: 20150910
  Transmission Date: 20151125
  Serious: Yes (Other)
  Sender: FDA-Public Use
  Company Number: PHHY2015TR106344

PATIENT
  Age: 27 Year
  Sex: Female

DRUGS (2)
  1. CITALOPRAM [Suspect]
     Active Substance: CITALOPRAM HYDROBROMIDE
     Indication: DEPRESSION
     Route: 065
  2. ESOMEPRAZOLE [Interacting]
     Active Substance: ESOMEPRAZOLE
     Indication: GASTRITIS
     Dosage: 40 MG, QD
     Route: 065

REACTIONS (6)
  - Irritability [Recovered/Resolved]
  - Anger [Recovered/Resolved]
  - Hyperaesthesia [Recovered/Resolved]
  - Drug interaction [Unknown]
  - Nervousness [Recovered/Resolved]
  - Aggression [Recovered/Resolved]
